FAERS Safety Report 5256819-0 (Version None)
Quarter: 2007Q1

REPORT INFORMATION
  Report Type: 
  Country: None (occurrence: None)
  Receive Date: 20070306
  Receipt Date: 20070221
  Transmission Date: 20070707
  Serious: Yes (Life-Threatening, Other)
  Sender: FDA-Public Use
  Company Number: BE-ELI_LILLY_AND_COMPANY-BE200701005242

PATIENT
  Age: 7 Year
  Sex: Female
  Weight: 24.9 kg

DRUGS (3)
  1. STRATTERA [Suspect]
     Indication: ATTENTION DEFICIT/HYPERACTIVITY DISORDER
     Dosage: 29 MG, DAILY (1/D)
     Dates: start: 20061228, end: 20070126
  2. RILATINE [Concomitant]
     Dosage: 5 MG, UNK
     Dates: start: 20061228, end: 20070104
  3. RILATINE [Concomitant]
     Dosage: 5 MG, 2/D
     Dates: start: 20070116

REACTIONS (9)
  - ABNORMAL BEHAVIOUR [None]
  - AFFECT LABILITY [None]
  - AGGRESSION [None]
  - AGITATION [None]
  - DEPRESSED MOOD [None]
  - ENURESIS [None]
  - INTENTIONAL DRUG MISUSE [None]
  - NEGATIVISM [None]
  - SUICIDAL IDEATION [None]
